FAERS Safety Report 13715639 (Version 1)
Quarter: 2017Q3

REPORT INFORMATION
  Report Type: Spontaneous
  Country: US (occurrence: US)
  Receive Date: 20170705
  Receipt Date: 20170705
  Transmission Date: 20171127
  Serious: No
  Sender: FDA-Public Use
  Company Number: US-TEVA-783859ACC

PATIENT
  Age: 33 Year
  Sex: Female

DRUGS (2)
  1. PARAGARD T 380A [Suspect]
     Active Substance: COPPER
     Indication: CONTRACEPTION
     Dates: start: 20170511, end: 20170531
  2. VALTREX [Concomitant]
     Active Substance: VALACYCLOVIR HYDROCHLORIDE
     Indication: HERPES VIRUS INFECTION

REACTIONS (6)
  - Vaginitis gardnerella [Unknown]
  - Pelvic pain [Recovered/Resolved]
  - Discomfort [Unknown]
  - Device expulsion [Recovered/Resolved]
  - Vaginal haemorrhage [Recovered/Resolved]
  - Vaginal discharge [Unknown]

NARRATIVE: CASE EVENT DATE: 20170511
